FAERS Safety Report 15963562 (Version 8)
Quarter: 2019Q2

REPORT INFORMATION
  Report Type: Spontaneous
  Country: US (occurrence: US)
  Receive Date: 20190214
  Receipt Date: 20190627
  Transmission Date: 20190711
  Serious: Yes (Hospitalization, Other)
  Sender: FDA-Public Use
  Company Number: US-PFIZER INC-2019065032

PATIENT
  Age: 84 Year
  Sex: Female

DRUGS (7)
  1. HYDROCHLOROTHIAZIDE. [Concomitant]
     Active Substance: HYDROCHLOROTHIAZIDE
     Dosage: UNK
  2. SUTENT [Suspect]
     Active Substance: SUNITINIB MALATE
     Indication: PANCREATIC CARCINOMA METASTATIC
     Dosage: 37.5 MG, CYCLIC (7 DAYS ON; 7 DAY OFF)
  3. SUTENT [Suspect]
     Active Substance: SUNITINIB MALATE
     Dosage: 37.5 MG, CYCLIC (10 DAYS ON FOLLOWED BY 7 DAY OFF)
  4. SUTENT [Suspect]
     Active Substance: SUNITINIB MALATE
     Dosage: 37.5 MG, CYCLIC (ONCE DAILY FOR 14 DAYS AND OFF FOR 7 DAYS)
     Route: 048
  5. AMLODIPINE [Concomitant]
     Active Substance: AMLODIPINE BESYLATE
     Dosage: UNK
  6. LEVOTHYROXINE. [Concomitant]
     Active Substance: LEVOTHYROXINE
     Dosage: UNK
  7. OXYCODONE W/APAP [Concomitant]
     Active Substance: ACETAMINOPHEN\OXYCODONE HYDROCHLORIDE
     Dosage: UNK

REACTIONS (11)
  - Pneumonia [Recovered/Resolved]
  - Malaise [Recovered/Resolved]
  - Body height decreased [Recovered/Resolved]
  - Asthenia [Unknown]
  - Weight increased [Recovered/Resolved]
  - Wound [Recovered/Resolved]
  - Impaired healing [Recovered/Resolved]
  - Product prescribing issue [Unknown]
  - Product dispensing error [Unknown]
  - Dysphonia [Not Recovered/Not Resolved]
  - Arthropathy [Recovered/Resolved]

NARRATIVE: CASE EVENT DATE: 2019
